FAERS Safety Report 5846171-1 (Version None)
Quarter: 2008Q3

REPORT INFORMATION
  Report Type: 
  Country: None (occurrence: None)
  Receive Date: 20080813
  Receipt Date: 20080806
  Transmission Date: 20090109
  Serious: Yes (Other)
  Sender: FDA-Public Use
  Company Number: 2008AL005825

PATIENT
  Age: 79 Year
  Sex: Female

DRUGS (6)
  1. DIGOXIN [Suspect]
     Indication: ATRIAL FIBRILLATION
     Dosage: 0.125MG, DAILY, PO
     Route: 048
  2. FLECAINIDE ACETATE [Concomitant]
  3. PRAVACHOL [Concomitant]
  4. COREG [Concomitant]
  5. FOSAMAX [Concomitant]
  6. WARFARIN SODIUM [Concomitant]

REACTIONS (11)
  - BACK PAIN [None]
  - DIZZINESS [None]
  - DYSPNOEA [None]
  - EYE DISORDER [None]
  - MALAISE [None]
  - MUSCULOSKELETAL CHEST PAIN [None]
  - NAUSEA [None]
  - OVERDOSE [None]
  - RENAL DISORDER [None]
  - THERAPEUTIC AGENT TOXICITY [None]
  - XANTHOPSIA [None]
